FAERS Safety Report 16629826 (Version 2)
Quarter: 2019Q3

REPORT INFORMATION
  Report Type: Spontaneous
  Country: FR (occurrence: FR)
  Receive Date: 20190725
  Receipt Date: 20190802
  Transmission Date: 20191004
  Serious: Yes (Other)
  Sender: FDA-Public Use
  Company Number: FR-PROVELL PHARMACEUTICALS-2071305

PATIENT
  Sex: Female

DRUGS (3)
  1. LEXOMIL [Concomitant]
     Active Substance: BROMAZEPAM
  2. EUTHYROX [Suspect]
     Active Substance: LEVOTHYROXINE SODIUM
     Indication: PRODUCT USED FOR UNKNOWN INDICATION
     Dates: start: 201709, end: 20190720
  3. ZOPICLONE [Concomitant]
     Active Substance: ZOPICLONE

REACTIONS (4)
  - Sleep disorder [None]
  - Poisoning [None]
  - Weight decreased [None]
  - Decreased appetite [None]
